FAERS Safety Report 20192764 (Version 2)
Quarter: 2022Q1

REPORT INFORMATION
  Report Type: Spontaneous
  Country: ES (occurrence: ES)
  Receive Date: 20211216
  Receipt Date: 20220117
  Transmission Date: 20220423
  Serious: Yes (Death, Life-Threatening, Hospitalization, Other)
  Sender: FDA-Public Use
  Company Number: None

PATIENT
  Age: 78 Year
  Sex: Male

DRUGS (12)
  1. PREDNISOLONE [Suspect]
     Active Substance: PREDNISOLONE
     Indication: COVID-19
     Dosage: UNK, 30 DAYS TAPERING REGIMEN
     Route: 065
  2. PREDNISOLONE [Suspect]
     Active Substance: PREDNISOLONE
     Indication: Organising pneumonia
  3. DEXAMETHASONE [Suspect]
     Active Substance: DEXAMETHASONE
     Indication: COVID-19
     Dosage: 6 MILLIGRAM EVERY 24 HOURS, HIGH DOSE
     Route: 065
  4. METHYLPREDNISOLONE [Suspect]
     Active Substance: METHYLPREDNISOLONE
     Indication: COVID-19
     Dosage: 250 MILLIGRAM, UNK
     Route: 042
  5. METHYLPREDNISOLONE [Suspect]
     Active Substance: METHYLPREDNISOLONE
     Indication: Organising pneumonia
     Dosage: 0.5 MILLIGRAM/KILOGRAM PER DAY
     Route: 065
  6. MEROPENEM [Concomitant]
     Active Substance: MEROPENEM
     Indication: Evidence based treatment
     Dosage: 1 GRAM, EVERY 12 HRS
     Route: 065
  7. MEROPENEM [Concomitant]
     Active Substance: MEROPENEM
     Indication: Pneumonia
  8. LINEZOLID [Concomitant]
     Active Substance: LINEZOLID
     Indication: Evidence based treatment
     Dosage: 600 MILLIGRAM, EVERY 12 HRS
     Route: 065
  9. LINEZOLID [Concomitant]
     Active Substance: LINEZOLID
     Indication: Pneumonia
     Dosage: 600 MILLIGRAM, EVERY 12 HRS
     Route: 065
  10. LINEZOLID [Concomitant]
     Active Substance: LINEZOLID
     Indication: Staphylococcal infection
  11. LINEZOLID [Concomitant]
     Active Substance: LINEZOLID
     Indication: Respiratory tract infection
  12. LINEZOLID [Concomitant]
     Active Substance: LINEZOLID
     Indication: Pneumonia

REACTIONS (6)
  - Staphylococcal infection [Fatal]
  - Respiratory tract infection [Fatal]
  - Disseminated cryptococcosis [Fatal]
  - Organising pneumonia [Recovered/Resolved]
  - Pneumonia [Recovered/Resolved]
  - Off label use [Unknown]
